FAERS Safety Report 8411293-8 (Version None)
Quarter: 2012Q2

REPORT INFORMATION
  Report Type: 
  Country: None (occurrence: None)
  Receive Date: 20120605
  Receipt Date: 20120521
  Transmission Date: 20120825
  Serious: Yes (Other)
  Sender: FDA-Public Use
  Company Number: AU-PFIZER INC-2012128921

PATIENT
  Age: 68 Year
  Sex: Female

DRUGS (3)
  1. RAMIPRIL [Suspect]
     Indication: HYPERTENSION
     Dosage: 5 MG, 1X/DAY
     Route: 048
     Dates: start: 20090201
  2. ATENOLOL [Concomitant]
     Dosage: UNK
  3. OVESTIN [Concomitant]
     Dosage: UNK

REACTIONS (3)
  - PRURITUS [None]
  - DRY SKIN [None]
  - URTICARIA [None]
